FAERS Safety Report 24721240 (Version 1)
Quarter: 2024Q4

REPORT INFORMATION
  Report Type: Spontaneous
  Country: US (occurrence: None)
  Receive Date: 20241210
  Receipt Date: 20241210
  Transmission Date: 20250114
  Serious: Yes (Death)
  Sender: Public
  Company Number: None

PATIENT
  Age: 66 Year
  Sex: Female
  Weight: 75.78 kg

DRUGS (2)
  1. ROCEPHIN [Suspect]
     Active Substance: CEFTRIAXONE SODIUM
  2. LIDOCAINE [Suspect]
     Active Substance: LIDOCAINE

REACTIONS (7)
  - Influenza [None]
  - Sinus congestion [None]
  - Dyspnoea [None]
  - Blood glucose increased [None]
  - Unresponsive to stimuli [None]
  - Heart rate decreased [None]
  - Drooling [None]

NARRATIVE: CASE EVENT DATE: 20241204
